FAERS Safety Report 6054228-8 (Version None)
Quarter: 2009Q1

REPORT INFORMATION
  Report Type: 
  Country: None (occurrence: None)
  Receive Date: 20090127
  Receipt Date: 20090126
  Transmission Date: 20090719
  Serious: Yes (Death, Hospitalization)
  Sender: FDA-Public Use
  Company Number: JP-JNJFOC-20080706564

PATIENT
  Sex: Male

DRUGS (4)
  1. ITRIZOLE [Suspect]
     Indication: ONYCHOMYCOSIS
     Route: 048
  2. TENORMIN [Concomitant]
     Indication: HYPERTENSION
     Route: 048
  3. OLMETEC [Concomitant]
     Indication: HYPERTENSION
     Route: 048
  4. GASTER D [Concomitant]
     Route: 048

REACTIONS (4)
  - PULMONARY CONGESTION [None]
  - RENAL TUBULAR NECROSIS [None]
  - SEPSIS [None]
  - STEVENS-JOHNSON SYNDROME [None]
